FAERS Safety Report 10222079 (Version 2)
Quarter: 2014Q2

REPORT INFORMATION
  Report Type: Report from Study
  Country: DE (occurrence: DE)
  Receive Date: 20140606
  Receipt Date: 20140606
  Transmission Date: 20141212
  Serious: Yes (Hospitalization, Other)
  Sender: FDA-Public Use
  Company Number: DE-BIOMARINAP-DE-2013-100538

PATIENT
  Age: 11 Year
  Sex: Female

DRUGS (3)
  1. NAGLAZYME [Suspect]
     Indication: MUCOPOLYSACCHARIDOSIS VI
     Dosage: 1 MG/KG, QW
     Route: 041
     Dates: start: 20050915
  2. PREDNISOLON                        /00016201/ [Concomitant]
     Indication: PREMEDICATION
     Dosage: 100 MG, UNK
     Route: 042
  3. FENISTIL [Concomitant]
     Indication: PREMEDICATION
     Dosage: 1 MG, UNK
     Route: 042

REACTIONS (1)
  - Chest pain [Recovered/Resolved]
